FAERS Safety Report 5380127-0 (Version None)
Quarter: 2007Q3

REPORT INFORMATION
  Report Type: 
  Country: None (occurrence: None)
  Receive Date: 20070706
  Receipt Date: 20070517
  Transmission Date: 20080115
  Serious: No
  Sender: FDA-Public Use
  Company Number: A0649084A

PATIENT
  Age: 51 Year
  Sex: Female

DRUGS (10)
  1. TYKERB [Suspect]
     Indication: BREAST CANCER
     Dosage: 1250MG PER DAY
     Route: 048
     Dates: start: 20070426
  2. XELODA [Concomitant]
  3. KEPPRA [Concomitant]
  4. AMITRIPTYLINE HCL [Concomitant]
  5. FAMOTIDIN [Concomitant]
  6. MELOXICAM [Concomitant]
  7. TOPAMAX [Concomitant]
  8. CYCLOBENZAPRINE HCL [Concomitant]
  9. HYDROCODONE BITARTRATE [Concomitant]
  10. TYLENOL [Concomitant]

REACTIONS (1)
  - NAUSEA [None]
